FAERS Safety Report 22608989 (Version 1)
Quarter: 2023Q2

REPORT INFORMATION
  Report Type: Spontaneous
  Country: CN (occurrence: CN)
  Receive Date: 20230616
  Receipt Date: 20230616
  Transmission Date: 20230721
  Serious: Yes (Hospitalization, Other)
  Sender: FDA-Public Use
  Company Number: CN-BoehringerIngelheim-2023-BI-244223

PATIENT
  Age: 30 Year
  Sex: Male
  Weight: 95.0 kg

DRUGS (3)
  1. JARDIANCE [Suspect]
     Active Substance: EMPAGLIFLOZIN
     Indication: Blood glucose increased
     Route: 048
     Dates: start: 20221220, end: 20230601
  2. GLUCOPHAGE [Concomitant]
     Active Substance: METFORMIN HYDROCHLORIDE
     Indication: Blood glucose increased
     Route: 048
     Dates: start: 20221220, end: 20230601
  3. GLUCOBAY [Concomitant]
     Active Substance: ACARBOSE
     Indication: Blood glucose increased
     Route: 048
     Dates: start: 20221220, end: 20230601

REACTIONS (2)
  - Ketosis [Recovering/Resolving]
  - Product use issue [Unknown]

NARRATIVE: CASE EVENT DATE: 20230601
